FAERS Safety Report 8181997-3 (Version None)
Quarter: 2012Q1

REPORT INFORMATION
  Report Type: 
  Country: None (occurrence: None)
  Receive Date: 20120302
  Receipt Date: 20120213
  Transmission Date: 20120608
  Serious: Yes (Other)
  Sender: FDA-Public Use
  Company Number: CA-ROCHE-GNE321389

PATIENT
  Sex: Female

DRUGS (6)
  1. XOLAIR [Suspect]
     Indication: ASTHMA
     Dosage: 300 MG, Q2W
     Route: 058
     Dates: start: 20100831, end: 20120117
  2. SINGULAIR [Concomitant]
  3. CRESTOR [Concomitant]
  4. SYMBICORT [Concomitant]
  5. VENTOLIN [Concomitant]
  6. MICARDIS [Concomitant]

REACTIONS (7)
  - DYSPHONIA [None]
  - LYMPHADENOPATHY [None]
  - PARAESTHESIA [None]
  - DIZZINESS [None]
  - MALAISE [None]
  - LOSS OF CONSCIOUSNESS [None]
  - LYMPHOCELE [None]
